FAERS Safety Report 24731701 (Version 1)
Quarter: 2024Q4

REPORT INFORMATION
  Report Type: Spontaneous
  Country: CH (occurrence: CH)
  Receive Date: 20241213
  Receipt Date: 20241213
  Transmission Date: 20250114
  Serious: Yes (Other)
  Sender: REGENERON
  Company Number: CH-BAYER-2024A176112

PATIENT
  Sex: Male

DRUGS (1)
  1. EYLEA HD [Suspect]
     Active Substance: AFLIBERCEPT
     Indication: Neovascular age-related macular degeneration
     Dosage: 4 DF; SOLUTION FOR INJECTION; 114.3 MG/ML
     Route: 031

REACTIONS (3)
  - Blindness transient [Unknown]
  - Intraocular pressure increased [Recovered/Resolved]
  - Ocular discomfort [Unknown]
